FAERS Safety Report 4270793-5 (Version None)
Quarter: 2004Q1

REPORT INFORMATION
  Report Type: 
  Country: None (occurrence: None)
  Receive Date: 20040113
  Receipt Date: 20031229
  Transmission Date: 20041129
  Serious: Yes (Other)
  Sender: FDA-Public Use
  Company Number: 189391

PATIENT
  Age: 52 Year
  Sex: Female
  Weight: 48.9885 kg

DRUGS (8)
  1. AVONEX [Suspect]
     Indication: MULTIPLE SCLEROSIS
     Dosage: 30 MCG QW IM
     Route: 030
     Dates: start: 19990101, end: 20030101
  2. AVONEX [Suspect]
     Indication: MULTIPLE SCLEROSIS
     Dosage: 30 MCG QW IM
     Route: 030
     Dates: start: 20030101, end: 20031217
  3. METAMUCIL ^SEARLE^ [Concomitant]
  4. SOMA [Concomitant]
  5. OXYCONTIN [Concomitant]
  6. CELEBREX [Concomitant]
  7. ACTIQ [Concomitant]
  8. NASAL SPRAY (NOS) [Concomitant]

REACTIONS (9)
  - BLINDNESS UNILATERAL [None]
  - GASTROOESOPHAGEAL REFLUX DISEASE [None]
  - GINGIVAL ABSCESS [None]
  - HYPERTENSION [None]
  - LIVER FUNCTION TEST ABNORMAL [None]
  - MULTIPLE SCLEROSIS [None]
  - RETINAL TEAR [None]
  - SARCOIDOSIS [None]
  - SWELLING FACE [None]
